FAERS Safety Report 9007492 (Version 2)
Quarter: 2013Q1

REPORT INFORMATION
  Report Type: Spontaneous
  Country: US (occurrence: US)
  Receive Date: 20130111
  Receipt Date: 20130125
  Transmission Date: 20140127
  Serious: No
  Sender: FDA-Public Use
  Company Number: US-009507513-1301USA003420

PATIENT
  Age: 50 Year
  Sex: Female
  Weight: 114.29 kg

DRUGS (9)
  1. VICTRELIS [Suspect]
     Dosage: 800 MG, TID
     Route: 048
  2. RIBAVIRIN [Suspect]
     Dosage: 200 MG
     Route: 048
  3. PEGASYS [Suspect]
     Dosage: 180 MCG/M
  4. BENADRYL [Concomitant]
     Dosage: 25 MG
     Route: 048
  5. CITALOPRAM [Concomitant]
     Dosage: 10 MG
     Route: 048
  6. LOSARTAN/HCT [Concomitant]
     Dosage: UNK
     Route: 048
  7. DIAZEPAM [Concomitant]
     Dosage: 2 MG
     Route: 048
  8. MAGNESIUM (UNSPECIFIED) [Concomitant]
     Dosage: 200 MG
     Route: 048
  9. TYLENOL [Concomitant]
     Dosage: 500 MG
     Route: 048

REACTIONS (5)
  - White blood cell count decreased [Unknown]
  - Abdominal pain upper [Unknown]
  - Vomiting [Unknown]
  - Gastroenteritis viral [Unknown]
  - Nasopharyngitis [Unknown]
